FAERS Safety Report 24449007 (Version 1)
Quarter: 2024Q4

REPORT INFORMATION
  Report Type: Spontaneous
  Country: US (occurrence: US)
  Receive Date: 20241017
  Receipt Date: 20241017
  Transmission Date: 20250114
  Serious: No
  Sender: PADAGIS
  Company Number: US-PADAGIS-2024PAD01606

PATIENT

DRUGS (2)
  1. TRETINOIN [Suspect]
     Active Substance: TRETINOIN
     Indication: Acne
     Dosage: UNK AT BEDTIME
     Route: 065
     Dates: start: 20240810
  2. TRETINOIN [Suspect]
     Active Substance: TRETINOIN
     Indication: Acne
     Dosage: UNK
     Route: 065
     Dates: start: 20240830

REACTIONS (5)
  - Drug hypersensitivity [Unknown]
  - Rash macular [Unknown]
  - Swelling face [Unknown]
  - Skin swelling [Unknown]
  - Skin irritation [Unknown]

NARRATIVE: CASE EVENT DATE: 20240811
